FAERS Safety Report 7630170 (Version 3)
Quarter: 2013Q2

REPORT INFORMATION
  Report Type: Spontaneous
  Country: US (occurrence: US)
  Receive Date: 20101014
  Receipt Date: 20130405
  Transmission Date: 20140414
  Serious: No
  Sender: FDA-Public Use
  Company Number: US-PFIZER INC-2009239104

PATIENT
  Age: 6 Year
  Sex: Male
  Weight: 36.28 kg

DRUGS (4)
  1. GENOTROPIN [Suspect]
     Indication: BODY HEIGHT BELOW NORMAL
     Dosage: 0.8 MG, 1X/DAY
     Route: 058
     Dates: start: 20090523
  2. GENOTROPIN [Suspect]
     Indication: BLOOD GROWTH HORMONE ABNORMAL
     Dosage: 2.2 MG, 1X/DAY
  3. GENOTROPIN [Suspect]
     Dosage: UNK
  4. ZYRTEC [Concomitant]
     Indication: HYPERSENSITIVITY
     Dosage: UNK, 2X/DAY
     Dates: start: 2007

REACTIONS (2)
  - Injection site pain [Recovered/Resolved]
  - Skin reaction [Unknown]
